FAERS Safety Report 21884469 (Version 12)
Quarter: 2024Q3

REPORT INFORMATION
  Report Type: Spontaneous
  Country: US (occurrence: US)
  Receive Date: 20230119
  Receipt Date: 20240930
  Transmission Date: 20241017
  Serious: Yes (Hospitalization, Other)
  Sender: PFIZER
  Company Number: US-PFIZER INC-PV202300010620

PATIENT
  Age: 72 Year
  Sex: Female
  Weight: 78.458 kg

DRUGS (9)
  1. IBRANCE [Suspect]
     Active Substance: PALBOCICLIB
     Indication: Breast cancer metastatic
     Dosage: 100 MG
     Route: 048
  2. IBRANCE [Suspect]
     Active Substance: PALBOCICLIB
     Dosage: 75 MG
     Route: 048
  3. IBRANCE [Suspect]
     Active Substance: PALBOCICLIB
     Dosage: 75 MG, 21 DAYS THEN 14 DAYS OFF
     Route: 048
     Dates: start: 20230628
  4. IBRANCE [Suspect]
     Active Substance: PALBOCICLIB
     Dosage: 75 MG, CYCLIC (14 DAYS ON AND 14 DAYS OFF)
     Route: 048
  5. LETROZOLE [Concomitant]
     Active Substance: LETROZOLE
     Dosage: UNK
  6. DENOSUMAB [Concomitant]
     Active Substance: DENOSUMAB
     Dosage: EVERY 4 WEEKS
  7. DENOSUMAB [Concomitant]
     Active Substance: DENOSUMAB
     Dosage: ONCE EVERY 8 WEEKS
  8. FASLODEX [Concomitant]
     Active Substance: FULVESTRANT
     Dosage: ONCE EVERY 4 WEEKS
  9. XGEVA [Concomitant]
     Active Substance: DENOSUMAB
     Dosage: ONCE EVERY 4 WEEKS

REACTIONS (9)
  - Pathological fracture [Unknown]
  - Neutropenia [Unknown]
  - Full blood count decreased [Unknown]
  - Blood glucose increased [Unknown]
  - Blood urea increased [Unknown]
  - Blood urea nitrogen/creatinine ratio increased [Unknown]
  - Carbohydrate antigen 27.29 increased [Unknown]
  - Neoplasm progression [Unknown]
  - Intentional product misuse [Unknown]
